FAERS Safety Report 17790437 (Version 1)
Quarter: 2020Q2

REPORT INFORMATION
  Report Type: Spontaneous
  Country: US (occurrence: US)
  Receive Date: 20200514
  Receipt Date: 20200514
  Transmission Date: 20200714
  Serious: No
  Sender: FDA-Public Use
  Company Number: US-RIGEL PHARMACEUTICALS, INC.-2020FOS000047

PATIENT
  Sex: Female

DRUGS (1)
  1. TAVALISSE [Suspect]
     Active Substance: FOSTAMATINIB
     Dosage: 100 MG, BID
     Route: 048

REACTIONS (10)
  - Feeling hot [Unknown]
  - Hyperhidrosis [Unknown]
  - Nausea [Unknown]
  - Rash erythematous [Unknown]
  - Musculoskeletal chest pain [Unknown]
  - Asthenia [Unknown]
  - Chills [Unknown]
  - Pain [Unknown]
  - Diarrhoea [Unknown]
  - Faeces pale [Unknown]
